FAERS Safety Report 20510623 (Version 2)
Quarter: 2022Q1

REPORT INFORMATION
  Report Type: Other
  Country: US (occurrence: None)
  Receive Date: 20220224
  Receipt Date: 20220307
  Transmission Date: 20220423
  Serious: Yes (Hospitalization)
  Sender: FDA-Public Use
  Company Number: US-ROCHE-3031931

PATIENT
  Age: 69 Year
  Sex: Female
  Weight: 59.020 kg

DRUGS (1)
  1. OCREVUS [Suspect]
     Active Substance: OCRELIZUMAB
     Indication: Secondary progressive multiple sclerosis
     Route: 042
     Dates: start: 20210216

REACTIONS (3)
  - COVID-19 pneumonia [Recovered/Resolved]
  - Therapeutic response shortened [Unknown]
  - Fatigue [Unknown]

NARRATIVE: CASE EVENT DATE: 20220214
